FAERS Safety Report 9956991 (Version 1)
Quarter: 2014Q1

REPORT INFORMATION
  Report Type: Report from Study
  Country: US (occurrence: US)
  Receive Date: 20140304
  Receipt Date: 20140304
  Transmission Date: 20141002
  Serious: No
  Sender: FDA-Public Use
  Company Number: US-ABBVIE-13P-163-1097388-00

PATIENT
  Sex: Female

DRUGS (4)
  1. HUMIRA [Suspect]
     Indication: CROHN^S DISEASE
     Route: 058
     Dates: start: 20120531, end: 20120531
  2. HUMIRA [Suspect]
     Route: 058
     Dates: start: 20120614, end: 20120614
  3. HUMIRA [Suspect]
     Route: 058
     Dates: start: 20120628
  4. 6-MP [Suspect]
     Indication: CROHN^S DISEASE

REACTIONS (1)
  - Hepatic enzyme abnormal [Unknown]
